FAERS Safety Report 5626386-8 (Version None)
Quarter: 2008Q1

REPORT INFORMATION
  Report Type: 
  Country: None (occurrence: None)
  Receive Date: 20080211
  Receipt Date: 20080125
  Transmission Date: 20080703
  Serious: Yes (Other)
  Sender: FDA-Public Use
  Company Number: 2007VX002233

PATIENT
  Age: 38 Year
  Sex: Female

DRUGS (1)
  1. FLURAZEPAM HYDROCHLORIDE [Suspect]

REACTIONS (3)
  - OVERDOSE [None]
  - SLUGGISHNESS [None]
  - SUICIDE ATTEMPT [None]
